FAERS Safety Report 17462545 (Version 1)
Quarter: 2020Q1

REPORT INFORMATION
  Report Type: Spontaneous
  Country: US (occurrence: US)
  Receive Date: 20200226
  Receipt Date: 20200226
  Transmission Date: 20200409
  Serious: Yes (Other)
  Sender: FDA-Public Use
  Company Number: US-TEVA-2020-US-1191211

PATIENT
  Age: 60 Year
  Sex: Female
  Weight: 118.04 kg

DRUGS (6)
  1. AUSTEDO [Suspect]
     Active Substance: DEUTETRABENAZINE
     Dosage: 18 MILLIGRAM DAILY;
     Route: 048
     Dates: start: 20200207, end: 20200214
  2. LISINOPRIL ORAL TABLET 40 MG [Concomitant]
     Route: 048
  3. ESCITALOPRAM OXALATE ORAL TABLET 20 MG [Concomitant]
     Route: 048
  4. BENZTROPINE MESYLATE ORAL TABLET 1 MG [Concomitant]
     Route: 048
  5. MIRTAZAPINE ORAL TABLET 15 MG [Concomitant]
     Route: 048
  6. AUSTEDO [Suspect]
     Active Substance: DEUTETRABENAZINE
     Indication: TARDIVE DYSKINESIA
     Dosage: 24 MILLIGRAM DAILY;
     Route: 048
     Dates: start: 20200214, end: 20200218

REACTIONS (3)
  - Hypersomnia [Unknown]
  - Weight increased [Unknown]
  - Sedation complication [Unknown]

NARRATIVE: CASE EVENT DATE: 20200219
